FAERS Safety Report 20150144 (Version 4)
Quarter: 2022Q1

REPORT INFORMATION
  Report Type: Report from Study
  Country: US (occurrence: US)
  Receive Date: 20211206
  Receipt Date: 20220329
  Transmission Date: 20220423
  Serious: Yes (Other)
  Sender: FDA-Public Use
  Company Number: US-NOVARTISTESTPH-NVSC2021US277031

PATIENT
  Age: 75 Year
  Sex: Female
  Weight: 52.154 kg

DRUGS (2)
  1. PIQRAY [Suspect]
     Active Substance: ALPELISIB
     Indication: Breast cancer
     Dosage: 300 MG, QD
     Route: 048
     Dates: start: 202111, end: 20220124
  2. PIQRAY [Suspect]
     Active Substance: ALPELISIB
     Dosage: 150 MG
     Route: 065

REACTIONS (7)
  - Malignant neoplasm progression [Recovering/Resolving]
  - Breast cancer [Unknown]
  - Colitis [Recovered/Resolved]
  - Rash [Recovering/Resolving]
  - Hyperglycaemia [Recovered/Resolved]
  - Diarrhoea [Unknown]
  - Drug ineffective [Unknown]

NARRATIVE: CASE EVENT DATE: 20220120
